FAERS Safety Report 20008234 (Version 11)
Quarter: 2022Q3

REPORT INFORMATION
  Report Type: Report from Study
  Country: US (occurrence: US)
  Receive Date: 20211029
  Receipt Date: 20220908
  Transmission Date: 20221026
  Serious: Yes (Hospitalization, Other)
  Sender: FDA-Public Use
  Company Number: US-BIOVITRUM-2021US7671

PATIENT
  Age: 60 Year
  Sex: Female

DRUGS (1)
  1. KINERET [Suspect]
     Active Substance: ANAKINRA
     Indication: Product used for unknown indication
     Dates: start: 20200115

REACTIONS (27)
  - Fall [Unknown]
  - Multiple injuries [Unknown]
  - Rhabdomyolysis [Unknown]
  - Kidney infection [Unknown]
  - Limb injury [Unknown]
  - Loss of personal independence in daily activities [Unknown]
  - Bedridden [Unknown]
  - Spinal cord compression [Unknown]
  - Drug withdrawal syndrome [Unknown]
  - Inflammation [Recovering/Resolving]
  - Stress [Unknown]
  - Illness [Unknown]
  - Sleep disorder [Unknown]
  - Adverse reaction [Unknown]
  - Sinus congestion [Unknown]
  - Dizziness [Recovered/Resolved]
  - Feeling abnormal [Unknown]
  - Injection site rash [Unknown]
  - Injection site inflammation [Unknown]
  - Injection site reaction [Unknown]
  - Injection site erythema [Unknown]
  - Injection site swelling [Unknown]
  - Injection site pruritus [Unknown]
  - Product dose omission issue [Unknown]
  - Drug ineffective [Unknown]
  - Intentional dose omission [Unknown]
  - Product availability issue [Unknown]

NARRATIVE: CASE EVENT DATE: 20220515
